FAERS Safety Report 7332487-9 (Version None)
Quarter: 2011Q1

REPORT INFORMATION
  Report Type: 
  Country: None (occurrence: None)
  Receive Date: 20110304
  Receipt Date: 20110221
  Transmission Date: 20110831
  Serious: Yes (Other)
  Sender: FDA-Public Use
  Company Number: US-ELI_LILLY_AND_COMPANY-US201101004819

PATIENT
  Sex: Male
  Weight: 90.703 kg

DRUGS (9)
  1. LIPITOR [Concomitant]
     Indication: PRODUCT USED FOR UNKNOWN INDICATION
     Dosage: 40 MG, EACH EVENING
     Route: 048
     Dates: start: 20021212
  2. METFORMIN [Concomitant]
     Indication: TYPE 2 DIABETES MELLITUS
     Dosage: 1000 MG, 2/D
     Route: 048
     Dates: start: 20030404
  3. ASPIRIN [Concomitant]
     Dosage: 325 MG, DAILY (1/D)
     Route: 048
     Dates: start: 20020711
  4. BYETTA [Suspect]
     Dosage: 10 UG, 2/D
     Route: 058
     Dates: start: 20090202, end: 20101223
  5. JANUVIA [Concomitant]
     Indication: TYPE 2 DIABETES MELLITUS
     Dosage: 100 MG, DAILY (1/D)
     Route: 048
     Dates: start: 20080429
  6. PRANDIN [Concomitant]
     Indication: TYPE 2 DIABETES MELLITUS
     Dosage: 2 MG, 3/D
     Route: 048
     Dates: start: 20090202
  7. ALTACE [Concomitant]
     Indication: PRODUCT USED FOR UNKNOWN INDICATION
     Dosage: 10 MG, EACH EVENING
     Route: 048
     Dates: start: 20021212
  8. LOPRESSOR [Concomitant]
     Indication: PRODUCT USED FOR UNKNOWN INDICATION
     Dosage: 50 MG, 2/D
     Route: 048
     Dates: start: 20020711
  9. BYETTA [Suspect]
     Indication: TYPE 2 DIABETES MELLITUS
     Dosage: 5 UG, 2/D
     Route: 058
     Dates: start: 20080317, end: 20090202

REACTIONS (1)
  - PANCREATITIS [None]
